FAERS Safety Report 7726146-8 (Version None)
Quarter: 2011Q3

REPORT INFORMATION
  Report Type: 
  Country: None (occurrence: None)
  Receive Date: 20110902
  Receipt Date: 20110901
  Transmission Date: 20111222
  Serious: Yes (Other)
  Sender: FDA-Public Use
  Company Number: US-AMGEN-USASP2011042117

PATIENT
  Sex: Male

DRUGS (1)
  1. ENBREL [Suspect]
     Indication: RHEUMATOID ARTHRITIS
     Dosage: 25 MG, UNK
     Dates: start: 20030101

REACTIONS (4)
  - JOINT DEPOSIT [None]
  - FIBROMYALGIA [None]
  - RHEUMATOID ARTHRITIS [None]
  - IMPAIRED WORK ABILITY [None]
